FAERS Safety Report 5552372-2 (Version None)
Quarter: 2007Q4

REPORT INFORMATION
  Report Type: 
  Country: None (occurrence: None)
  Receive Date: 20071212
  Receipt Date: 20071206
  Transmission Date: 20080405
  Serious: Yes (Hospitalization)
  Sender: FDA-Public Use
  Company Number: US-MERCK-0712USA02318

PATIENT
  Age: 71 Year
  Sex: Female

DRUGS (8)
  1. COZAAR [Suspect]
     Route: 065
  2. COUMADIN [Concomitant]
     Route: 065
  3. DIGITEK [Concomitant]
     Route: 065
  4. ASPIRIN [Concomitant]
     Route: 065
  5. TOPROL-XL [Concomitant]
     Route: 065
  6. NORVASC [Concomitant]
     Route: 065
  7. PRINIVIL [Concomitant]
     Route: 065
  8. CRESTOR [Concomitant]
     Route: 065

REACTIONS (2)
  - ATRIAL FIBRILLATION [None]
  - BLOOD PRESSURE INCREASED [None]
